FAERS Safety Report 9540440 (Version 4)
Quarter: 2013Q4

REPORT INFORMATION
  Report Type: Spontaneous
  Country: FR (occurrence: FR)
  Receive Date: 20130920
  Receipt Date: 20131210
  Transmission Date: 20140711
  Serious: Yes (Other)
  Sender: FDA-Public Use
  Company Number: FR-GLAXOSMITHKLINE-B0922943A

PATIENT
  Age: 76 Year
  Sex: Female
  Weight: 45 kg

DRUGS (5)
  1. SERETIDE [Suspect]
     Indication: RESPIRATORY FAILURE
     Dosage: 2PUFF AT NIGHT
     Route: 055
     Dates: start: 2003, end: 20130904
  2. BECOTIDE [Suspect]
     Indication: RESPIRATORY FAILURE
     Dosage: 2PUFF IN THE MORNING
     Route: 055
     Dates: start: 2003, end: 20130904
  3. VENTOLINE [Suspect]
     Indication: RESPIRATORY FAILURE
     Dosage: 100MCG AS REQUIRED
     Route: 055
     Dates: start: 2003
  4. HEMIGOXINE [Concomitant]
     Indication: ARRHYTHMIA
     Route: 048
     Dates: start: 200806
  5. SINTRON [Concomitant]
     Indication: ATRIAL FIBRILLATION
     Route: 048
     Dates: start: 200806

REACTIONS (11)
  - Cushing^s syndrome [Recovered/Resolved]
  - Erythema [Recovered/Resolved]
  - Oedema peripheral [Recovered/Resolved with Sequelae]
  - Petechiae [Recovered/Resolved with Sequelae]
  - Haematoma [Unknown]
  - Stasis dermatitis [Recovered/Resolved with Sequelae]
  - C-reactive protein increased [Recovering/Resolving]
  - Proteinuria [Unknown]
  - Haematuria [Unknown]
  - Hypertension [Unknown]
  - Off label use [Unknown]
